FAERS Safety Report 5678912-0 (Version None)
Quarter: 2008Q1

REPORT INFORMATION
  Report Type: 
  Country: None (occurrence: None)
  Receive Date: 20080325
  Receipt Date: 20080320
  Transmission Date: 20080703
  Serious: Yes (Other)
  Sender: FDA-Public Use
  Company Number: US-ASTRAZENECA-2007UW18860

PATIENT
  Age: 18244 Day
  Sex: Female
  Weight: 124.5 kg

DRUGS (4)
  1. SEROQUEL [Suspect]
     Indication: BIPOLAR DISORDER
     Route: 048
     Dates: start: 20010301, end: 20050901
  2. SEROQUEL [Suspect]
     Indication: SLEEP DISORDER
     Route: 048
     Dates: start: 20010301, end: 20050901
  3. CLOZARIL [Concomitant]
     Dates: start: 20010101
  4. GEODON [Concomitant]
     Dates: start: 20050101

REACTIONS (9)
  - CARPAL TUNNEL DECOMPRESSION [None]
  - CHOLECYSTECTOMY [None]
  - COLON OPERATION [None]
  - DIABETES MELLITUS [None]
  - FALL [None]
  - HERNIA [None]
  - INFECTION [None]
  - LOWER LIMB FRACTURE [None]
  - NAUSEA [None]
